FAERS Safety Report 11373160 (Version 1)
Quarter: 2015Q3

REPORT INFORMATION
  Report Type: Spontaneous
  Country: US (occurrence: US)
  Receive Date: 20150811
  Receipt Date: 20150811
  Transmission Date: 20151125
  Serious: No
  Sender: FDA-Public Use
  Company Number: US-ELI_LILLY_AND_COMPANY-US201207002661

PATIENT
  Age: 74 Year
  Sex: Female

DRUGS (1)
  1. ADCIRCA [Suspect]
     Active Substance: TADALAFIL
     Indication: PULMONARY HYPERTENSION
     Dosage: 20 MG, BID
     Dates: start: 20120706, end: 20120709

REACTIONS (3)
  - Back pain [Unknown]
  - Intentional product misuse [Unknown]
  - Pain in extremity [Unknown]

NARRATIVE: CASE EVENT DATE: 20120708
